FAERS Safety Report 7127631-2 (Version None)
Quarter: 2010Q4

REPORT INFORMATION
  Report Type: 
  Country: None (occurrence: None)
  Receive Date: 20101130
  Receipt Date: 20101117
  Transmission Date: 20110411
  Serious: Yes (Hospitalization)
  Sender: FDA-Public Use
  Company Number: US-BIOGENIDEC-2010BI026804

PATIENT
  Age: 54 Year
  Sex: Female

DRUGS (3)
  1. TYSABRI [Suspect]
     Indication: MULTIPLE SCLEROSIS
     Route: 042
     Dates: start: 20100505
  2. AVONEX [Concomitant]
     Indication: MULTIPLE SCLEROSIS
     Route: 030
  3. MAXALT [Concomitant]
     Indication: HEADACHE

REACTIONS (13)
  - ASTHENIA [None]
  - BLOOD PRESSURE INCREASED [None]
  - DEPRESSION [None]
  - FALL [None]
  - HEADACHE [None]
  - HYPERTENSION [None]
  - INSOMNIA [None]
  - MIGRAINE [None]
  - NAUSEA [None]
  - OEDEMA PERIPHERAL [None]
  - PAIN [None]
  - STRESS [None]
  - VISUAL IMPAIRMENT [None]
